FAERS Safety Report 8854374 (Version 2)
Quarter: 2012Q4

REPORT INFORMATION
  Report Type: 
  Country: FR (occurrence: FR)
  Receive Date: 20121023
  Receipt Date: 20121030
  Transmission Date: 20130627
  Serious: Yes (Other)
  Sender: FDA-Public Use
  Company Number: FR-ROCHE-1147344

PATIENT
  Sex: Female

DRUGS (4)
  1. RIVOTRIL [Suspect]
     Indication: PRODUCT USED FOR UNKNOWN INDICATION
     Route: 065
     Dates: start: 200709
  2. LAMALINE [Concomitant]
     Dosage: 6 to 8 tablets
     Route: 065
  3. SPASFON [Concomitant]
     Dosage: 6 to 8 tablets
     Route: 065
  4. DOLIPRANE [Concomitant]

REACTIONS (8)
  - Visual impairment [Unknown]
  - Sleep disorder [Unknown]
  - Dyspepsia [Unknown]
  - Paralysis [Unknown]
  - Pain [Unknown]
  - Fatigue [Unknown]
  - Psychiatric symptom [Unknown]
  - Bulimia nervosa [Unknown]
